FAERS Safety Report 5119738-6 (Version None)
Quarter: 2006Q3

REPORT INFORMATION
  Report Type: 
  Country: None (occurrence: None)
  Receive Date: 20060929
  Receipt Date: 20060919
  Transmission Date: 20061208
  Serious: Yes (Hospitalization)
  Sender: FDA-Public Use
  Company Number: 2006114411

PATIENT
  Sex: Female

DRUGS (3)
  1. BEXTRA [Suspect]
     Indication: OSTEOARTHRITIS
     Dates: start: 20030101, end: 20030401
  2. CELEBREX [Suspect]
     Indication: OSTEOARTHRITIS
     Dates: start: 20020601, end: 20030101
  3. VIOXX [Suspect]
     Dosage: ORAL
     Route: 048
     Dates: start: 20020101, end: 20020601

REACTIONS (2)
  - AMNESIA [None]
  - CEREBROVASCULAR ACCIDENT [None]
